FAERS Safety Report 7651764-5 (Version None)
Quarter: 2011Q3

REPORT INFORMATION
  Report Type: 
  Country: None (occurrence: None)
  Receive Date: 20110802
  Receipt Date: 20110725
  Transmission Date: 20111222
  Serious: Yes (Hospitalization)
  Sender: FDA-Public Use
  Company Number: US-RB-025419-11

PATIENT
  Age: 25 Year
  Sex: Male

DRUGS (2)
  1. SUBOXONE [Suspect]
     Indication: DRUG DEPENDENCE
     Route: 060
     Dates: start: 20101001, end: 20110201
  2. SUBOXONE [Suspect]
     Route: 060
     Dates: start: 20110401

REACTIONS (6)
  - DRUG WITHDRAWAL SYNDROME [None]
  - BACTERIAL INFECTION [None]
  - PAIN IN EXTREMITY [None]
  - OEDEMA PERIPHERAL [None]
  - DRUG DEPENDENCE [None]
  - SUBSTANCE ABUSE [None]
